FAERS Safety Report 9023552 (Version 1)
Quarter: 2013Q1

REPORT INFORMATION
  Report Type: Spontaneous
  Country: US (occurrence: US)
  Receive Date: 20130121
  Receipt Date: 20130121
  Transmission Date: 20140127
  Serious: Yes (Death, Other)
  Sender: FDA-Public Use
  Company Number: US-PFIZER INC-2012150242

PATIENT
  Age: 9 Year
  Sex: Male

DRUGS (1)
  1. XALKORI [Suspect]
     Indication: RENAL CANCER
     Dosage: 200 MG, 1X/DAY
     Dates: start: 20120614, end: 20121212

REACTIONS (3)
  - Death [Fatal]
  - Bone marrow disorder [Unknown]
  - Off label use [Unknown]
